FAERS Safety Report 5205811-0 (Version None)
Quarter: 2007Q1

REPORT INFORMATION
  Report Type: 
  Country: None (occurrence: None)
  Receive Date: 20070111
  Receipt Date: 20070102
  Transmission Date: 20070707
  Serious: Yes (Other)
  Sender: FDA-Public Use
  Company Number: BR-ROCHE-447199

PATIENT
  Age: 29 Year
  Sex: Female

DRUGS (3)
  1. ROACUTAN [Suspect]
     Indication: ACNE
     Route: 048
     Dates: start: 20050915, end: 20060315
  2. ROACUTAN [Suspect]
     Route: 048
     Dates: start: 20060315, end: 20060315
  3. CONTRACEPTIVE [Concomitant]
     Indication: CONTRACEPTION
     Route: 048
     Dates: start: 20050915, end: 20060315

REACTIONS (1)
  - ABORTION SPONTANEOUS [None]
